FAERS Safety Report 11317613 (Version 2)
Quarter: 2016Q1

REPORT INFORMATION
  Report Type: Spontaneous
  Country: US (occurrence: US)
  Receive Date: 20150728
  Receipt Date: 20160215
  Transmission Date: 20160525
  Serious: Yes (Hospitalization)
  Sender: FDA-Public Use
  Company Number: US-BAYER-2015-388862

PATIENT
  Age: 33 Year
  Sex: Female
  Weight: 99.32 kg

DRUGS (2)
  1. MIRENA [Suspect]
     Active Substance: LEVONORGESTREL
     Indication: CONTRACEPTION
     Dosage: 20 MCG/24HR, CONT
     Route: 015
     Dates: start: 20090323, end: 20130729
  2. TYLENOL [Concomitant]
     Active Substance: ACETAMINOPHEN

REACTIONS (5)
  - Medical device discomfort [None]
  - Pelvic pain [None]
  - Medical device pain [None]
  - Injury [None]
  - Embedded device [None]

NARRATIVE: CASE EVENT DATE: 201307
